FAERS Safety Report 19024869 (Version 1)
Quarter: 2021Q1

REPORT INFORMATION
  Report Type: Spontaneous
  Country: US (occurrence: US)
  Receive Date: 20210317
  Receipt Date: 20210317
  Transmission Date: 20210420
  Serious: Yes (Other)
  Sender: FDA-Public Use
  Company Number: None

PATIENT
  Age: 57 Year
  Sex: Female
  Weight: 61.65 kg

DRUGS (11)
  1. LISINOPRIL. [Concomitant]
     Active Substance: LISINOPRIL
  2. XANAX [Concomitant]
     Active Substance: ALPRAZOLAM
  3. FLUTICASONE. [Concomitant]
     Active Substance: FLUTICASONE
  4. ADVAIR HFA [Concomitant]
     Active Substance: FLUTICASONE PROPIONATE\SALMETEROL XINAFOATE
  5. ONDANSETRON [Concomitant]
     Active Substance: ONDANSETRON
  6. ALEVE [Concomitant]
     Active Substance: NAPROXEN SODIUM
  7. LIDOCAINE. [Concomitant]
     Active Substance: LIDOCAINE
  8. CAPECITABINE. [Suspect]
     Active Substance: CAPECITABINE
     Indication: COLON CANCER
     Route: 048
     Dates: start: 20201210
  9. CYCLOBENZAPRINE. [Concomitant]
     Active Substance: CYCLOBENZAPRINE
  10. LORATADINE. [Concomitant]
     Active Substance: LORATADINE
  11. FERROUS GLUCONATE [Concomitant]
     Active Substance: FERROUS GLUCONATE

REACTIONS (3)
  - Lip swelling [None]
  - Ear pain [None]
  - Swollen tongue [None]

NARRATIVE: CASE EVENT DATE: 20210317
